FAERS Safety Report 8992485 (Version 2)
Quarter: 2013Q1

REPORT INFORMATION
  Report Type: Spontaneous
  Country: US (occurrence: US)
  Receive Date: 20121229
  Receipt Date: 20130220
  Transmission Date: 20140127
  Serious: No
  Sender: FDA-Public Use
  Company Number: US-009507513-1212USA008526

PATIENT
  Age: 31 Year
  Sex: Female
  Weight: 54.42 kg

DRUGS (1)
  1. NEXPLANON [Suspect]
     Indication: CONTRACEPTION
     Dosage: 1 68 MG ROD UP TO 3 YEARS
     Route: 059
     Dates: start: 20121115

REACTIONS (2)
  - Metrorrhagia [Not Recovered/Not Resolved]
  - Weight decreased [Not Recovered/Not Resolved]
